FAERS Safety Report 9153740 (Version 1)
Quarter: 2013Q1

REPORT INFORMATION
  Report Type: Spontaneous
  Country: SE (occurrence: SE)
  Receive Date: 20130311
  Receipt Date: 20130311
  Transmission Date: 20140127
  Serious: Yes (Other)
  Sender: FDA-Public Use
  Company Number: SE-JNJFOC-20130300967

PATIENT
  Sex: Female

DRUGS (7)
  1. XARELTO [Suspect]
     Indication: EMBOLISM VENOUS
     Route: 048
     Dates: start: 201211, end: 20121220
  2. AMLODIPINE [Concomitant]
     Route: 065
  3. PREDNISOLONE [Concomitant]
     Route: 065
  4. ALVEDON [Concomitant]
     Route: 065
  5. INNOHEP [Concomitant]
     Route: 065
  6. KALCIPOS [Concomitant]
     Route: 065
  7. LASIX RETARD [Concomitant]
     Route: 065

REACTIONS (1)
  - Alopecia [Unknown]
